FAERS Safety Report 8200079-5 (Version None)
Quarter: 2012Q1

REPORT INFORMATION
  Report Type: 
  Country: None (occurrence: None)
  Receive Date: 20120312
  Receipt Date: 20120302
  Transmission Date: 20120608
  Serious: Yes (Other)
  Sender: FDA-Public Use
  Company Number: US-SHIRE-ALL1-2012-01216

PATIENT
  Sex: Female

DRUGS (1)
  1. VPRIV [Suspect]
     Indication: GAUCHER'S DISEASE
     Dosage: 800 IU, 1X/2WKS
     Route: 041
     Dates: start: 20100428

REACTIONS (3)
  - PYREXIA [None]
  - INFLUENZA [None]
  - PHARYNGITIS STREPTOCOCCAL [None]
